FAERS Safety Report 10367956 (Version 1)
Quarter: 2014Q1

REPORT INFORMATION
  Report Type: Spontaneous
  Country: US (occurrence: None)
  Receive Date: 20140306
  Receipt Date: 20140306
  Transmission Date: 20141002
  Serious: Yes (Hospitalization)
  Sender: FDA-Public Use
  Company Number: 163-21880-13023383

PATIENT
  Age: 84 Year
  Sex: Female
  Weight: 58.06 kg

DRUGS (12)
  1. REVLIMID (LENALIDOMIDE) (CAPSULES) [Suspect]
     Indication: PLASMA CELL MYELOMA
     Route: 048
     Dates: start: 20121224
  2. LIDOCAINE (LIDOCAINE) [Concomitant]
  3. LISINOPRIL (LISINOPRIL) [Concomitant]
  4. DURAGESIC (FENTANYL) [Concomitant]
  5. TOPROL XL (METOPROLOL SUCCINATE) [Concomitant]
  6. MORPHINE (MORPHINE) [Concomitant]
  7. PROMETHAZINE (PROMETHAZINE) [Concomitant]
  8. ACYCLOVIR (ACICLOVIR) (ACICLOVIR) [Concomitant]
  9. SERTRALINE (SERTRALINE) [Concomitant]
  10. DEXAMETHASONE (DEXAMETHASONE) [Concomitant]
  11. OMEPRAZOLE (OMEPRAZOLE) [Concomitant]
  12. NORCO (VICODIN) [Concomitant]

REACTIONS (1)
  - Pneumonia [None]
